FAERS Safety Report 18110006 (Version 1)
Quarter: 2020Q3

REPORT INFORMATION
  Report Type: Spontaneous
  Country: GB (occurrence: GB)
  Receive Date: 20200804
  Receipt Date: 20200804
  Transmission Date: 20201103
  Serious: Yes (Life-Threatening)
  Sender: FDA-Public Use
  Company Number: GB-TEVA-2020-GB-1808886

PATIENT
  Age: 14 Year
  Sex: Female
  Weight: 51.6 kg

DRUGS (3)
  1. CLOMIFENE CITRATE [Concomitant]
     Active Substance: CLOMIPHENE
  2. PHENERGAN [Concomitant]
     Active Substance: PROMETHAZINE HYDROCHLORIDE
     Dosage: 50 MILLIGRAM
  3. RISPERIDONE. [Suspect]
     Active Substance: RISPERIDONE
     Indication: SLEEP DISORDER
     Dosage: 4 MILLIGRAM
     Route: 048
     Dates: start: 20200710, end: 20200711

REACTIONS (2)
  - Depressed level of consciousness [Unknown]
  - Dystonia [Unknown]

NARRATIVE: CASE EVENT DATE: 20200711
